FAERS Safety Report 4821182-3 (Version None)
Quarter: 2005Q4

REPORT INFORMATION
  Report Type: 
  Country: None (occurrence: None)
  Receive Date: 20051103
  Receipt Date: 20051013
  Transmission Date: 20060501
  Serious: Yes (Other)
  Sender: FDA-Public Use
  Company Number: USA0507102532

PATIENT
  Age: 73 Year
  Sex: Female

DRUGS (6)
  1. FORTEO [Suspect]
     Indication: OSTEOPOROSIS
     Dates: start: 20050706
  2. ESTROGENS CONJUGATED [Concomitant]
  3. PROTONIX [Concomitant]
  4. ZANTAC [Concomitant]
  5. TOLECTIN [Concomitant]
  6. CITRACAL (CALCIUM CITRATE) [Concomitant]

REACTIONS (6)
  - CELLULITIS [None]
  - HEADACHE [None]
  - INJECTION SITE ERYTHEMA [None]
  - LUNG NEOPLASM [None]
  - PHARMACEUTICAL PRODUCT COMPLAINT [None]
  - PNEUMONIA [None]
